FAERS Safety Report 9001097 (Version 3)
Quarter: 2013Q3

REPORT INFORMATION
  Report Type: Spontaneous
  Country: US (occurrence: None)
  Receive Date: 20130104
  Receipt Date: 20130815
  Transmission Date: 20140515
  Serious: Yes (Hospitalization, Other)
  Sender: FDA-Public Use
  Company Number: ADR-2012-02352

PATIENT
  Age: 56 Year
  Sex: Male

DRUGS (4)
  1. BACLOFEN INTRATHECAL [Suspect]
     Indication: MUSCLE SPASTICITY
  2. MORPHINE [Concomitant]
  3. BACLOFEN AND OXYTOCIN [Concomitant]
  4. ANTIBIOTICS [Concomitant]

REACTIONS (14)
  - Pneumonia [None]
  - Urinary tract infection [None]
  - Pulmonary embolism [None]
  - Nausea [None]
  - Dysgeusia [None]
  - Device damage [None]
  - Sudden onset of sleep [None]
  - Feeling abnormal [None]
  - Enuresis [None]
  - Movement disorder [None]
  - Depressed level of consciousness [None]
  - Muscle spasticity [None]
  - Mental status changes [None]
  - Infrequent bowel movements [None]
